FAERS Safety Report 6386279-8 (Version None)
Quarter: 2009Q4

REPORT INFORMATION
  Report Type: 
  Country: None (occurrence: None)
  Receive Date: 20091002
  Receipt Date: 20090818
  Transmission Date: 20100525
  Serious: No
  Sender: FDA-Public Use
  Company Number: US-BAYER-200913624BCC

PATIENT
  Age: 67 Year
  Sex: Female
  Weight: 82 kg

DRUGS (9)
  1. ALEVE [Suspect]
     Indication: BACK PAIN
     Dosage: TOTAL DAILY DOSE: 440 MG  UNIT DOSE: 220 MG
     Route: 048
     Dates: end: 20090815
  2. TRAMADOL HCL [Concomitant]
     Route: 065
  3. TEMAZEPAM [Concomitant]
     Route: 065
  4. OMEPRAZOLE [Concomitant]
     Route: 065
  5. GABAPENTIN [Concomitant]
     Route: 065
  6. AMRIX [Concomitant]
     Route: 065
  7. RANITIDINE [Concomitant]
     Route: 065
  8. ONE-A-DAY WOMENS [Concomitant]
     Route: 065
  9. VITAMIN E [Concomitant]
     Route: 065

REACTIONS (3)
  - FATIGUE [None]
  - HOT FLUSH [None]
  - OROPHARYNGEAL BLISTERING [None]
